FAERS Safety Report 5379265-8 (Version None)
Quarter: 2007Q3

REPORT INFORMATION
  Report Type: 
  Country: None (occurrence: None)
  Receive Date: 20070705
  Receipt Date: 20070625
  Transmission Date: 20080115
  Serious: Yes (Other)
  Sender: FDA-Public Use
  Company Number: US-PFIZER INC-2007053306

PATIENT
  Sex: Female
  Weight: 77.1 kg

DRUGS (6)
  1. CHANTIX [Suspect]
     Indication: SMOKING CESSATION THERAPY
  2. LAMICTAL [Concomitant]
  3. ZOLOFT [Concomitant]
  4. ADDERALL XR 10 [Concomitant]
  5. NUVARING [Concomitant]
  6. PRILOSEC [Concomitant]

REACTIONS (1)
  - HYPOMANIA [None]
